FAERS Safety Report 15155519 (Version 1)
Quarter: 2018Q3

REPORT INFORMATION
  Report Type: Spontaneous
  Country: FR (occurrence: FR)
  Receive Date: 20180717
  Receipt Date: 20180717
  Transmission Date: 20181010
  Serious: Yes (Other)
  Sender: FDA-Public Use
  Company Number: FR-MYLANLABS-2018M1051416

PATIENT
  Age: 58 Year

DRUGS (1)
  1. CIPROFLOXACIN. [Suspect]
     Active Substance: CIPROFLOXACIN
     Indication: PROSTATITIS
     Dosage: 500 MG, BID
     Route: 065
     Dates: start: 200501

REACTIONS (9)
  - Tendonitis [Recovered/Resolved]
  - Petechiae [Recovered/Resolved with Sequelae]
  - Paraesthesia [Recovered/Resolved with Sequelae]
  - Blister [Recovered/Resolved with Sequelae]
  - Skin ulcer [Recovered/Resolved with Sequelae]
  - Myalgia [Recovered/Resolved]
  - Glomerulonephritis [Recovered/Resolved with Sequelae]
  - Oedema peripheral [Recovering/Resolving]
  - Vasculitis necrotising [Recovered/Resolved with Sequelae]
